FAERS Safety Report 5531343-6 (Version None)
Quarter: 2007Q4

REPORT INFORMATION
  Report Type: 
  Country: None (occurrence: None)
  Receive Date: 20071128
  Receipt Date: 20071119
  Transmission Date: 20080405
  Serious: Yes (Other)
  Sender: FDA-Public Use
  Company Number: GXKR2007GB09957

PATIENT
  Age: 70 Year
  Sex: Female
  Weight: 80 kg

DRUGS (1)
  1. RANITDINE (NGX) (RANITIDINE HYDROCHLORIDE) UNKNOWN [Suspect]
     Dosage: 300 MG, QD, ORAL
     Route: 048

REACTIONS (3)
  - ARTHRALGIA [None]
  - HEADACHE [None]
  - SWELLING FACE [None]
